FAERS Safety Report 5503411-6 (Version None)
Quarter: 2007Q4

REPORT INFORMATION
  Report Type: 
  Country: None (occurrence: None)
  Receive Date: 20071031
  Receipt Date: 20071026
  Transmission Date: 20080405
  Serious: Yes (Hospitalization)
  Sender: FDA-Public Use
  Company Number: NL-PFIZER INC-2007087950

PATIENT
  Sex: Male

DRUGS (2)
  1. ARTHROTEC [Suspect]
     Indication: SKIN DISORDER
     Route: 048
     Dates: start: 20070924, end: 20070926
  2. AMOXICILLIN [Suspect]
     Indication: SKIN DISORDER
     Route: 048

REACTIONS (2)
  - DRUG INTERACTION POTENTIATION [None]
  - ENTEROCOLITIS HAEMORRHAGIC [None]
